FAERS Safety Report 25382046 (Version 2)
Quarter: 2025Q2

REPORT INFORMATION
  Report Type: Spontaneous
  Country: JP (occurrence: JP)
  Receive Date: 20250531
  Receipt Date: 20250626
  Transmission Date: 20250717
  Serious: Yes (Other)
  Sender: UNITED THERAPEUTICS
  Company Number: JP-UNITED THERAPEUTICS-UNT-2025-018457

PATIENT
  Age: 50 Year
  Sex: Female

DRUGS (1)
  1. REMODULIN [Suspect]
     Active Substance: TREPROSTINIL
     Indication: Heritable pulmonary arterial hypertension
     Route: 041

REACTIONS (6)
  - Hyperthyroidism [Recovering/Resolving]
  - Adrenal insufficiency [Recovering/Resolving]
  - Empty sella syndrome [Unknown]
  - Hypoglycaemia [Unknown]
  - Stupor [Recovering/Resolving]
  - Aggression [Unknown]
